FAERS Safety Report 6074874-5 (Version None)
Quarter: 2009Q1

REPORT INFORMATION
  Report Type: 
  Country: None (occurrence: None)
  Receive Date: 20090212
  Receipt Date: 20090209
  Transmission Date: 20090719
  Serious: Yes (Death, Other)
  Sender: FDA-Public Use
  Company Number: GB-BRISTOL-MYERS SQUIBB COMPANY-12683777

PATIENT
  Age: 64 Year
  Sex: Male
  Weight: 88 kg

DRUGS (22)
  1. PACLITAXEL [Suspect]
     Indication: BLADDER TRANSITIONAL CELL CARCINOMA
     Dosage: IN 250 ML NS OVER 1 HOUR
     Route: 042
     Dates: start: 20040115, end: 20040116
  2. CISPLATIN [Suspect]
     Indication: BLADDER TRANSITIONAL CELL CARCINOMA
     Dosage: IN NS OVER 4 HOURS
     Route: 042
     Dates: start: 20040115, end: 20040116
  3. GEMCITABINE [Suspect]
     Indication: BLADDER TRANSITIONAL CELL CARCINOMA
     Dosage: IN 250 ML NS OVER 30 MINUTES
     Route: 042
     Dates: start: 20040115, end: 20040116
  4. ORAMORPH SR [Concomitant]
     Route: 048
     Dates: start: 20040115, end: 20040119
  5. ORAMORPH SR [Concomitant]
     Route: 048
     Dates: start: 20040114, end: 20040121
  6. INFUMORPH [Concomitant]
     Dates: start: 20040114, end: 20040123
  7. INFUMORPH [Concomitant]
     Dates: start: 20040123, end: 20040127
  8. FRUSEMIDE [Concomitant]
     Route: 048
     Dates: start: 20040115, end: 20040118
  9. LACTULOSE [Concomitant]
     Dates: start: 20040114, end: 20040203
  10. SENNA [Concomitant]
     Dates: start: 20040114, end: 20040126
  11. ACETAMINOPHEN [Concomitant]
     Route: 048
     Dates: start: 20040114, end: 20040203
  12. DOMPERIDONE [Concomitant]
     Route: 048
     Dates: start: 20040114, end: 20040127
  13. ONDANSETRON [Concomitant]
     Route: 048
     Dates: start: 20040114, end: 20040115
  14. GRANISETRON [Concomitant]
     Dates: start: 20040116, end: 20040118
  15. LANSOPRAZOLE [Concomitant]
     Route: 048
     Dates: start: 20040117, end: 20040203
  16. DEXAMETHASONE TAB [Concomitant]
     Route: 048
     Dates: start: 20040116, end: 20040119
  17. DEXAMETHASONE TAB [Concomitant]
     Route: 048
     Dates: start: 20040119, end: 20040122
  18. DEXAMETHASONE TAB [Concomitant]
     Route: 048
     Dates: start: 20040123, end: 20040125
  19. IBUPROFEN [Concomitant]
     Route: 048
     Dates: start: 20040115, end: 20040127
  20. CITALOPRAM HYDROBROMIDE [Concomitant]
     Route: 048
     Dates: start: 20040116, end: 20040203
  21. SALBUTAMOL [Concomitant]
  22. OXYGEN [Concomitant]
     Dosage: VARAIBLE RATES
     Route: 045

REACTIONS (4)
  - EPISTAXIS [None]
  - NEUTROPENIA [None]
  - RENAL FAILURE [None]
  - THROMBOCYTOPENIA [None]
